FAERS Safety Report 6618420-3 (Version None)
Quarter: 2010Q1

REPORT INFORMATION
  Report Type: 
  Country: None (occurrence: None)
  Receive Date: 20100308
  Receipt Date: 20100225
  Transmission Date: 20100710
  Serious: Yes (Hospitalization)
  Sender: FDA-Public Use
  Company Number: B0637802A

PATIENT
  Age: 46 Year
  Sex: Female

DRUGS (7)
  1. SEROXAT [Suspect]
     Indication: DEPRESSION
     Dosage: 40MG PER DAY
     Route: 048
     Dates: start: 20080101, end: 20091123
  2. RISPERDAL [Suspect]
     Indication: SCHIZOPHRENIA
     Dosage: 4.5MG TWICE PER DAY
     Route: 048
     Dates: start: 20080101, end: 20091123
  3. VALIUM [Suspect]
     Indication: ANXIETY
     Route: 048
     Dates: start: 20080101, end: 20091123
  4. NOCTAMID [Suspect]
     Indication: ANXIETY
     Route: 048
     Dates: start: 20080101, end: 20091123
  5. IBUPROFEN [Suspect]
     Route: 048
     Dates: start: 20091108, end: 20091123
  6. PARACETAMOL [Suspect]
     Indication: RESPIRATORY TRACT INFECTION
     Route: 048
     Dates: start: 20091123, end: 20091204
  7. OMEPRAZOLE [Suspect]

REACTIONS (4)
  - DEPRESSED LEVEL OF CONSCIOUSNESS [None]
  - INAPPROPRIATE ANTIDIURETIC HORMONE SECRETION [None]
  - RENAL FAILURE ACUTE [None]
  - THROMBOCYTOPENIA [None]
